FAERS Safety Report 5131677-3 (Version None)
Quarter: 2006Q4

REPORT INFORMATION
  Report Type: 
  Country: None (occurrence: None)
  Receive Date: 20061016
  Receipt Date: 20061003
  Transmission Date: 20070319
  Serious: Yes (Hospitalization)
  Sender: FDA-Public Use
  Company Number: 2006082789

PATIENT
  Age: 64 Year
  Sex: Male
  Weight: 69.3 kg

DRUGS (10)
  1. SUTENT [Suspect]
     Indication: RENAL CELL CARCINOMA STAGE UNSPECIFIED
     Dosage: SEE IMAGE
     Route: 048
     Dates: start: 20060726, end: 20060822
  2. SUTENT [Suspect]
     Indication: RENAL CELL CARCINOMA STAGE UNSPECIFIED
     Dosage: SEE IMAGE
     Route: 048
     Dates: start: 20060530
  3. SUTENT [Suspect]
     Indication: RENAL CELL CARCINOMA STAGE UNSPECIFIED
     Dosage: SEE IMAGE
     Route: 048
     Dates: start: 20060906
  4. CANDESARTAN CILEXETIL (CANDESARTAN CILEXETIL) [Concomitant]
  5. FLUNITRAZEPAM (FLUNITRAZEPAM) [Concomitant]
  6. BROTIZOLAM (BROTIZOLAM) [Concomitant]
  7. ZOPICLONE (ZOPICLONE) [Concomitant]
  8. DIFLUPREDNATE (DIFLUPREDNATE) [Concomitant]
  9. SENNA LEAF (SENNA LEAF) [Concomitant]
  10. POSTERISAN FORTE (ESCHERICHIA COLI, LYOPHILIZED, HYDROCORTISONE, LANOL [Concomitant]

REACTIONS (4)
  - ANAL FISTULA [None]
  - CONDITION AGGRAVATED [None]
  - HAEMORRHOIDAL HAEMORRHAGE [None]
  - PLATELET COUNT DECREASED [None]
